FAERS Safety Report 16259802 (Version 1)
Quarter: 2019Q2

REPORT INFORMATION
  Report Type: Spontaneous
  Country: US (occurrence: US)
  Receive Date: 20190501
  Receipt Date: 20190501
  Transmission Date: 20190711
  Serious: Yes (Hospitalization)
  Sender: FDA-Public Use
  Company Number: US-PERRIGO-19US005159

PATIENT
  Age: 31 Year
  Sex: Male

DRUGS (1)
  1. LOPERAMIDE HYDROCHLORIDE. [Suspect]
     Active Substance: LOPERAMIDE HYDROCHLORIDE
     Indication: DRUG ABUSE
     Dosage: 280 MG, QD
     Route: 048

REACTIONS (5)
  - Drug abuse [Recovered/Resolved]
  - Ventricular tachycardia [Unknown]
  - Torsade de pointes [Unknown]
  - Seizure [Recovered/Resolved]
  - Electrocardiogram QT prolonged [Unknown]
